FAERS Safety Report 5958113-9 (Version None)
Quarter: 2008Q4

REPORT INFORMATION
  Report Type: 
  Country: None (occurrence: None)
  Receive Date: 20081117
  Receipt Date: 20081117
  Transmission Date: 20090506
  Serious: Yes (Hospitalization)
  Sender: FDA-Public Use
  Company Number: None

PATIENT
  Sex: Male
  Weight: 121.2 kg

DRUGS (2)
  1. DASATINIB [Suspect]
     Indication: MALIGNANT SOFT TISSUE NEOPLASM
     Dosage: 50 MG BID PO
     Route: 048
     Dates: start: 20081029, end: 20081104
  2. DASATINIB [Suspect]
     Indication: METASTASIS
     Dosage: 50 MG BID PO
     Route: 048
     Dates: start: 20081029, end: 20081104

REACTIONS (5)
  - ANAEMIA [None]
  - ASTHENIA [None]
  - BLOOD PRESSURE DIASTOLIC DECREASED [None]
  - FATIGUE [None]
  - PAIN IN EXTREMITY [None]
